FAERS Safety Report 7121526-6 (Version None)
Quarter: 2010Q4

REPORT INFORMATION
  Report Type: 
  Country: None (occurrence: None)
  Receive Date: 20101124
  Receipt Date: 20101119
  Transmission Date: 20110411
  Serious: Yes (Hospitalization)
  Sender: FDA-Public Use
  Company Number: ZA-SANOFI-AVENTIS-2010SA068127

PATIENT
  Age: 64 Year
  Sex: Female

DRUGS (3)
  1. LANTUS [Suspect]
     Indication: TYPE 2 DIABETES MELLITUS
     Route: 058
     Dates: start: 20100501
  2. APIDRA [Suspect]
     Indication: TYPE 2 DIABETES MELLITUS
     Route: 058
     Dates: start: 20100501
  3. AMLOC [Concomitant]
     Route: 048

REACTIONS (3)
  - BRONCHITIS [None]
  - DIZZINESS [None]
  - HYPERGLYCAEMIA [None]
